FAERS Safety Report 4979257-4 (Version None)
Quarter: 2006Q2

REPORT INFORMATION
  Report Type: 
  Country: None (occurrence: None)
  Receive Date: 20060421
  Receipt Date: 20060209
  Transmission Date: 20061013
  Serious: Yes (Hospitalization)
  Sender: FDA-Public Use
  Company Number: IT-BRISTOL-MYERS SQUIBB COMPANY-13278627

PATIENT
  Age: 63 Year
  Sex: Female

DRUGS (3)
  1. ERBITUX [Suspect]
     Indication: SQUAMOUS CELL CARCINOMA
     Route: 041
     Dates: start: 20051118
  2. CISPLATIN [Suspect]
     Indication: SQUAMOUS CELL CARCINOMA
     Route: 042
     Dates: start: 20051118
  3. FLUOROURACIL [Suspect]
     Indication: SQUAMOUS CELL CARCINOMA
     Route: 042
     Dates: start: 20051118

REACTIONS (2)
  - FEBRILE NEUTROPENIA [None]
  - URINE ELECTROLYTES DECREASED [None]
